FAERS Safety Report 17784336 (Version 1)
Quarter: 2020Q2

REPORT INFORMATION
  Report Type: Spontaneous
  Country: US (occurrence: US)
  Receive Date: 20200513
  Receipt Date: 20200513
  Transmission Date: 20200714
  Serious: No
  Sender: FDA-Public Use
  Company Number: None

PATIENT
  Sex: Female

DRUGS (1)
  1. TYSABRI [Suspect]
     Active Substance: NATALIZUMAB
     Indication: MULTIPLE SCLEROSIS
     Dosage: OTHER FREQUENCY:EVERY 28 DAYS;?
     Route: 042
     Dates: start: 201903

REACTIONS (3)
  - Abortion spontaneous [None]
  - Twin pregnancy [None]
  - Exposure during pregnancy [None]
